FAERS Safety Report 13597187 (Version 3)
Quarter: 2017Q3

REPORT INFORMATION
  Report Type: Spontaneous
  Country: GB (occurrence: GB)
  Receive Date: 20170531
  Receipt Date: 20170922
  Transmission Date: 20171127
  Serious: Yes (Other)
  Sender: FDA-Public Use
  Company Number: GB-TORRENT-00015199

PATIENT
  Sex: Female

DRUGS (12)
  1. ACETYLSALICYLIC ACID/ASPIRIN [Suspect]
     Active Substance: ASPIRIN
  2. CITALOPRAM [Suspect]
     Active Substance: CITALOPRAM HYDROBROMIDE
  3. AMIODARONE [Suspect]
     Active Substance: AMIODARONE
  4. COCODAMOL [Suspect]
     Active Substance: ACETAMINOPHEN\CODEINE PHOSPHATE
  5. LANSOPRAZOLE. [Suspect]
     Active Substance: LANSOPRAZOLE
  6. LYRICA [Suspect]
     Active Substance: PREGABALIN
  7. PERINDOPRIL [Suspect]
     Active Substance: PERINDOPRIL
  8. SALBUTAMOL [Suspect]
     Active Substance: ALBUTEROL
  9. CLOPIDOGREL [Suspect]
     Active Substance: CLOPIDOGREL BISULFATE
  10. FABRAZYME [Suspect]
     Active Substance: AGALSIDASE BETA
  11. FULTIUM-D3 [Suspect]
     Active Substance: CHOLECALCIFEROL
  12. NEBIVOLOL/NEBIVOLOL HYDROCHLORIDE [Suspect]
     Active Substance: NEBIVOLOL HYDROCHLORIDE

REACTIONS (3)
  - Wheezing [Unknown]
  - Cough [Recovered/Resolved]
  - Lower respiratory tract infection [Unknown]
